FAERS Safety Report 17571266 (Version 5)
Quarter: 2020Q2

REPORT INFORMATION
  Report Type: Spontaneous
  Country: US (occurrence: US)
  Receive Date: 20200323
  Receipt Date: 20200407
  Transmission Date: 20200713
  Serious: Yes (Hospitalization, Other)
  Sender: FDA-Public Use
  Company Number: US-PFIZER INC-2020122160

PATIENT
  Age: 72 Year
  Sex: Female

DRUGS (2)
  1. LYRICA [Suspect]
     Active Substance: PREGABALIN
     Dosage: 125 MG (50 MG AND 75MG), 3X/DAY
     Route: 048
  2. LYRICA [Suspect]
     Active Substance: PREGABALIN
     Dosage: 125 MG (50 MG AND 75MG), 3X/DAY
     Route: 048

REACTIONS (5)
  - Mental impairment [Unknown]
  - Fall [Unknown]
  - Memory impairment [Unknown]
  - Femur fracture [Unknown]
  - Sedation [Unknown]

NARRATIVE: CASE EVENT DATE: 20200120
